FAERS Safety Report 9607630 (Version 1)
Quarter: 2013Q4

REPORT INFORMATION
  Report Type: Spontaneous
  Country: US (occurrence: US)
  Receive Date: 20131009
  Receipt Date: 20131009
  Transmission Date: 20140711
  Serious: Yes (Other)
  Sender: FDA-Public Use
  Company Number: PHEH2013US020827

PATIENT
  Sex: Female

DRUGS (2)
  1. TRILEPTAL [Suspect]
     Dosage: UNK UKN, UNK
  2. TRILEPTAL [Suspect]
     Dosage: 300 MG, TID
     Route: 048

REACTIONS (1)
  - Grand mal convulsion [Unknown]
